FAERS Safety Report 5879754-3 (Version None)
Quarter: 2008Q3

REPORT INFORMATION
  Report Type: 
  Country: None (occurrence: None)
  Receive Date: 20080912
  Receipt Date: 20080905
  Transmission Date: 20090109
  Serious: Yes (Hospitalization)
  Sender: FDA-Public Use
  Company Number: FR-ABBOTT-04P-056-0279719-00

PATIENT
  Sex: Female
  Weight: 46 kg

DRUGS (10)
  1. HUMIRA [Suspect]
     Indication: RHEUMATOID ARTHRITIS
     Route: 058
     Dates: start: 20040219, end: 20040826
  2. HUMIRA [Suspect]
     Route: 058
     Dates: start: 20040930
  3. AMOXICILLIN + CLAVULANATE POTASSIUM [Concomitant]
     Indication: EAR INFECTION
     Dates: start: 20040817, end: 20040822
  4. COMMERCIAL HUMIRA [Concomitant]
     Indication: RHEUMATOID ARTHRITIS
     Route: 058
     Dates: start: 20031204, end: 20040826
  5. BACTRIM [Concomitant]
     Indication: EAR INFECTION
     Dates: start: 20040820, end: 20040822
  6. SMECTITE [Concomitant]
     Indication: DIARRHOEA
     Dates: start: 20040820, end: 20040822
  7. CIPROFLOXACIN [Concomitant]
     Indication: SALMONELLOSIS
     Dates: start: 20040824
  8. METHOTREXATE [Concomitant]
     Indication: RHEUMATOID ARTHRITIS
     Dates: start: 20031202, end: 20040910
  9. PREDNISONE TAB [Concomitant]
     Indication: RHEUMATOID ARTHRITIS
     Dates: start: 20000101
  10. FLUOXETINE HYDROCHLORIDE [Concomitant]
     Indication: DEPRESSION
     Dates: start: 20040101

REACTIONS (1)
  - SALMONELLOSIS [None]
